FAERS Safety Report 9357358 (Version 1)
Quarter: 2013Q2

REPORT INFORMATION
  Report Type: Spontaneous
  Country: CN (occurrence: CN)
  Receive Date: 20130620
  Receipt Date: 20130620
  Transmission Date: 20140414
  Serious: Yes (Other)
  Sender: FDA-Public Use
  Company Number: CN-JNJFOC-20130608927

PATIENT
  Sex: 0

DRUGS (3)
  1. DOXORUBICIN HYDROCHLORIDE [Suspect]
     Indication: NON-SMALL CELL LUNG CANCER
     Dosage: DAY 1 FOR 3 WEEKS
     Route: 042
  2. DOCETAXEL [Suspect]
     Indication: NON-SMALL CELL LUNG CANCER
     Dosage: DAY 2 FOR 3 WEEKS
     Route: 065
  3. TAXOTERE [Suspect]
     Indication: NON-SMALL CELL LUNG CANCER
     Dosage: DAY 2 FOR 3 WEEKS
     Route: 065

REACTIONS (6)
  - Neutropenia [Unknown]
  - Leukopenia [Unknown]
  - Gastrointestinal disorder [Unknown]
  - Off label use [Unknown]
  - Alopecia [Unknown]
  - Vomiting [Unknown]
